FAERS Safety Report 14013054 (Version 1)
Quarter: 2017Q3

REPORT INFORMATION
  Report Type: Spontaneous
  Country: GB (occurrence: GB)
  Receive Date: 20170926
  Receipt Date: 20170926
  Transmission Date: 20171128
  Serious: Yes (Congenital Anomaly)
  Sender: FDA-Public Use
  Company Number: GB-PFIZER INC-2017410686

PATIENT
  Sex: Female

DRUGS (1)
  1. NARDIL [Suspect]
     Active Substance: PHENELZINE SULFATE
     Indication: MENTAL DISORDER
     Dosage: UNK
     Route: 064

REACTIONS (2)
  - Limb reduction defect [Unknown]
  - Maternal exposure during pregnancy [Unknown]

NARRATIVE: CASE EVENT DATE: 19650302
